FAERS Safety Report 4556250-7 (Version None)
Quarter: 2005Q1

REPORT INFORMATION
  Report Type: 
  Country: None (occurrence: None)
  Receive Date: 20050119
  Receipt Date: 20050117
  Transmission Date: 20050727
  Serious: Yes (Other)
  Sender: FDA-Public Use
  Company Number: DE-MERCK-0501DEU00172

PATIENT
  Age: 63 Year
  Sex: Male

DRUGS (2)
  1. VIOXX [Suspect]
     Indication: PAIN
     Route: 048
     Dates: start: 20001026
  2. VIOXX [Suspect]
     Route: 048
     Dates: start: 20001026

REACTIONS (3)
  - ANXIETY [None]
  - DYSPNOEA [None]
  - MYOCARDIAL INFARCTION [None]
